FAERS Safety Report 4766697-1 (Version None)
Quarter: 2005Q3

REPORT INFORMATION
  Report Type: 
  Country: None (occurrence: None)
  Receive Date: 20050912
  Receipt Date: 20050901
  Transmission Date: 20060218
  Serious: Yes (Hospitalization, Other)
  Sender: FDA-Public Use
  Company Number: 2005059018

PATIENT
  Age: 72 Year
  Sex: Female

DRUGS (10)
  1. CELEBREX [Suspect]
     Indication: OSTEOARTHRITIS
     Dosage: 200 MG (200 MG, 1 IN 1 D), ORAL
     Route: 048
     Dates: start: 20041001
  2. ZIAC [Concomitant]
  3. KLONOPIN [Concomitant]
  4. URSODIOL (URSODEOXYCHOLIC ACID) [Concomitant]
  5. ALTACE [Concomitant]
  6. BENZONATATE [Concomitant]
  7. ZYPREXA [Concomitant]
  8. CLONAZEPAM [Concomitant]
  9. DARVOCET-N 100 [Concomitant]
  10. CLARINEX [Concomitant]

REACTIONS (9)
  - ABASIA [None]
  - BONE PAIN [None]
  - CHOLELITHIASIS [None]
  - ECONOMIC PROBLEM [None]
  - OEDEMA PERIPHERAL [None]
  - PAIN [None]
  - PAIN IN EXTREMITY [None]
  - PANCREATITIS [None]
  - WEIGHT DECREASED [None]
